FAERS Safety Report 22731744 (Version 7)
Quarter: 2023Q4

REPORT INFORMATION
  Report Type: Spontaneous
  Country: US (occurrence: US)
  Receive Date: 20230720
  Receipt Date: 20231006
  Transmission Date: 20240110
  Serious: Yes (Hospitalization, Other)
  Sender: FDA-Public Use
  Company Number: US-PFIZER INC-PV202300123327

PATIENT
  Age: 43 Year
  Sex: Female
  Weight: 78.458 kg

DRUGS (1)
  1. DEPO-PROVERA [Suspect]
     Active Substance: MEDROXYPROGESTERONE ACETATE
     Indication: Contraception
     Dosage: UNK UNK, EVERY 3 MONTHS
     Dates: start: 20001228, end: 201905

REACTIONS (9)
  - Injection site scar [Not Recovered/Not Resolved]
  - Injection site indentation [Unknown]
  - Nervous system disorder [Unknown]
  - Back pain [Unknown]
  - Pain in extremity [Unknown]
  - Feeling abnormal [Unknown]
  - Gait inability [Unknown]
  - Burning sensation [Unknown]
  - Pain [Unknown]

NARRATIVE: CASE EVENT DATE: 20230801
